FAERS Safety Report 8817804 (Version 1)
Quarter: 2012Q4

REPORT INFORMATION
  Report Type: 
  Country: US (occurrence: US)
  Receive Date: 20121001
  Receipt Date: 20121001
  Transmission Date: 20130627
  Serious: Yes (Hospitalization)
  Sender: FDA-Public Use
  Company Number: US-FRI-1000038990

PATIENT
  Sex: Male

DRUGS (2)
  1. DALIRESP [Suspect]
  2. DALIRESP [Suspect]

REACTIONS (2)
  - Anaphylactic reaction [Recovered/Resolved]
  - Throat irritation [Recovered/Resolved]
